FAERS Safety Report 13429529 (Version 4)
Quarter: 2017Q3

REPORT INFORMATION
  Report Type: Report from Study
  Country: None (occurrence: US)
  Receive Date: 20170411
  Receipt Date: 20170807
  Transmission Date: 20171127
  Serious: Yes (Hospitalization)
  Sender: FDA-Public Use
  Company Number: US-ABBVIE-17K-163-1935795-00

PATIENT
  Sex: Female
  Weight: 91.71 kg

DRUGS (6)
  1. FOSAMAX [Concomitant]
     Active Substance: ALENDRONATE SODIUM
     Indication: OSTEOPENIA
  2. HUMIRA [Suspect]
     Active Substance: ADALIMUMAB
     Indication: RHEUMATOID ARTHRITIS
     Route: 058
     Dates: start: 201608, end: 201705
  3. HUMIRA [Suspect]
     Active Substance: ADALIMUMAB
     Route: 058
     Dates: start: 201705
  4. DEXILANT [Concomitant]
     Active Substance: DEXLANSOPRAZOLE
     Indication: GASTROOESOPHAGEAL REFLUX DISEASE
  5. MONTELUKAST [Concomitant]
     Active Substance: MONTELUKAST SODIUM
     Indication: HYPERSENSITIVITY
  6. RIZATRIPTAN. [Concomitant]
     Active Substance: RIZATRIPTAN
     Indication: MIGRAINE

REACTIONS (7)
  - Adhesion [Recovered/Resolved]
  - Focal nodular hyperplasia [Not Recovered/Not Resolved]
  - Breast hyperplasia [Recovered/Resolved]
  - Hepatic steatosis [Not Recovered/Not Resolved]
  - Hiatus hernia [Recovered/Resolved]
  - Gastric polyps [Recovered/Resolved]
  - Breast calcifications [Unknown]

NARRATIVE: CASE EVENT DATE: 2017
